FAERS Safety Report 10055086 (Version 1)
Quarter: 2014Q2

REPORT INFORMATION
  Report Type: Spontaneous
  Country: US (occurrence: US)
  Receive Date: 20140402
  Receipt Date: 20140402
  Transmission Date: 20141212
  Serious: No
  Sender: FDA-Public Use
  Company Number: US-SA-2014SA008305

PATIENT
  Age: 47 Year
  Sex: Female

DRUGS (1)
  1. AUBAGIO [Suspect]
     Indication: MULTIPLE SCLEROSIS
     Route: 065
     Dates: start: 20130827, end: 201312

REACTIONS (5)
  - Dyspnoea [Unknown]
  - Lacrimation increased [Unknown]
  - Alopecia [Unknown]
  - Nausea [Unknown]
  - Rash [Unknown]
